FAERS Safety Report 23122216 (Version 1)
Quarter: 2023Q4

REPORT INFORMATION
  Report Type: Spontaneous
  Country: US (occurrence: US)
  Receive Date: 20231030
  Receipt Date: 20231030
  Transmission Date: 20240110
  Serious: No
  Sender: FDA-Public Use
  Company Number: US-SUN PHARMACEUTICAL INDUSTRIES LTD-2023R1-377691

PATIENT
  Sex: Female

DRUGS (4)
  1. XELPROS [Suspect]
     Active Substance: LATANOPROST
     Indication: Glaucoma
     Dosage: UNK, QD IN THE EVENING BEFORE BED
     Route: 047
  2. SICCASAN [Concomitant]
     Indication: Dry eye
     Dosage: UNK, COUPLE OF TIMES A DAY
     Route: 065
  3. ZYRTEC [Concomitant]
     Active Substance: CETIRIZINE HYDROCHLORIDE
     Indication: Hypersensitivity
     Dosage: UNK
     Route: 065
  4. TIMOLOL [Concomitant]
     Active Substance: TIMOLOL
     Indication: Product used for unknown indication
     Dosage: 1 DROP, BID, IN EACH EYE
     Route: 065

REACTIONS (2)
  - Drug ineffective [Unknown]
  - Intraocular pressure increased [Unknown]
